FAERS Safety Report 9296147 (Version 1)
Quarter: 2013Q2

REPORT INFORMATION
  Report Type: Spontaneous
  Country: CA (occurrence: CA)
  Receive Date: 20130517
  Receipt Date: 20130517
  Transmission Date: 20140414
  Serious: Yes (Death, Other)
  Sender: FDA-Public Use
  Company Number: CA-OTSUKA-US-2013-10932

PATIENT
  Age: 192 Month
  Sex: Female

DRUGS (7)
  1. BUSULFEX [Suspect]
     Indication: STEM CELL TRANSPLANT
     Dosage: UNK UNKNOWN, UNKNOWN
     Route: 042
  2. CYCLOPHOSPHAMIDE [Concomitant]
     Indication: STEM CELL TRANSPLANT
     Dosage: UNK UNKNOWN, UNKNOWN
     Route: 065
  3. ETOPOSIDE [Concomitant]
     Indication: STEM CELL TRANSPLANT
     Dosage: UNK UNKNOWN, UNKNOWN
     Route: 065
  4. CYCLOSPORINE [Concomitant]
     Indication: PROPHYLAXIS AGAINST GRAFT VERSUS HOST DISEASE
     Dosage: UNK UNKNOWN, UNKNOWN
     Route: 065
  5. GANCICLOVIR [Concomitant]
     Indication: ANTIVIRAL PROPHYLAXIS
     Dosage: UNK UNKNOWN, UNKNOWN
     Route: 065
  6. PENICILIN [Concomitant]
     Indication: ANTIBIOTIC PROPHYLAXIS
     Dosage: UNK UNKNOWN, UNKNOWN
     Route: 065
  7. METHOTREXATE [Concomitant]
     Indication: PROPHYLAXIS AGAINST GRAFT VERSUS HOST DISEASE
     Dosage: UNK UNKNOWN, UNKNOWN
     Route: 065

REACTIONS (10)
  - Death [Fatal]
  - Venoocclusive liver disease [Unknown]
  - Graft versus host disease [Unknown]
  - Candida infection [Unknown]
  - Epstein-Barr virus infection [Unknown]
  - Renal impairment [Unknown]
  - Mediastinal mass [Unknown]
  - Pleural effusion [Unknown]
  - Hypertension [Unknown]
  - Hyperglycaemia [Unknown]
